FAERS Safety Report 9398769 (Version 1)
Quarter: 2013Q3

REPORT INFORMATION
  Report Type: Spontaneous
  Country: US (occurrence: US)
  Receive Date: 20130712
  Receipt Date: 20130712
  Transmission Date: 20140515
  Serious: No
  Sender: FDA-Public Use
  Company Number: US-009507513-1307USA003203

PATIENT
  Age: 52 Year
  Sex: Female

DRUGS (1)
  1. PEGINTRON [Suspect]
     Indication: HEPATITIS C
     Dosage: 150 MCG WEEKLY
     Route: 058
     Dates: start: 20130529, end: 20130703

REACTIONS (5)
  - Decreased activity [Unknown]
  - Aphagia [Unknown]
  - Panic attack [Unknown]
  - Insomnia [Unknown]
  - Anxiety [Unknown]
